FAERS Safety Report 5050492-2 (Version None)
Quarter: 2006Q3

REPORT INFORMATION
  Report Type: 
  Country: None (occurrence: None)
  Receive Date: 20060707
  Receipt Date: 20060621
  Transmission Date: 20061208
  Serious: Yes (Congenital Anomaly)
  Sender: FDA-Public Use
  Company Number: 6023656

PATIENT
  Sex: Male

DRUGS (3)
  1. METHIMAZOLE [Suspect]
     Indication: BASEDOW'S DISEASE
     Dosage: 40,000 MG (40 MG, 1 IN 1 D); 20,000 MG (20  MG, 1 IN 1 D) TRANSPLACENTAL    MATERNAL USE
     Route: 064
  2. PROPRANOLOL [Concomitant]
  3. HALOPERINDOL (HALOPERINDOL) [Concomitant]

REACTIONS (9)
  - CAESAREAN SECTION [None]
  - CONGENITAL ANOMALY [None]
  - DEVELOPMENTAL DELAY [None]
  - DRUG EXPOSURE DURING PREGNANCY [None]
  - EXOMPHALOS [None]
  - PREMATURE SEPARATION OF PLACENTA [None]
  - SKULL MALFORMATION [None]
  - TREATMENT NONCOMPLIANCE [None]
  - TWIN PREGNANCY [None]
